FAERS Safety Report 22348995 (Version 10)
Quarter: 2025Q2

REPORT INFORMATION
  Report Type: Report from Study
  Country: US (occurrence: US)
  Receive Date: 20230522
  Receipt Date: 20250527
  Transmission Date: 20250717
  Serious: Yes (Hospitalization, Other)
  Sender: TAKEDA
  Company Number: US-TAKEDA-2023TUS050126

PATIENT
  Sex: Female
  Weight: 80 kg

DRUGS (13)
  1. HUMAN IMMUNOGLOBULIN G [Suspect]
     Active Substance: HUMAN IMMUNOGLOBULIN G
     Indication: Immunodeficiency common variable
     Dosage: 10 GRAM, 1/WEEK
     Dates: start: 20230331
  2. BENADRYL [Suspect]
     Active Substance: DIPHENHYDRAMINE HYDROCHLORIDE
     Indication: Product used for unknown indication
  3. ACYCLOVIR [Concomitant]
     Active Substance: ACYCLOVIR
  4. ATIVAN [Concomitant]
     Active Substance: LORAZEPAM
  5. ALBUTEROL SULFATE [Concomitant]
     Active Substance: ALBUTEROL SULFATE
  6. VITAMIN D3 [Concomitant]
     Active Substance: CHOLECALCIFEROL
  7. BACTRIM [Concomitant]
     Active Substance: SULFAMETHOXAZOLE\TRIMETHOPRIM
  8. ALBUTEROL SULFATE [Concomitant]
     Active Substance: ALBUTEROL SULFATE
  9. DIPHENHYDRAMINE HYDROCHLORIDE [Concomitant]
     Active Substance: DIPHENHYDRAMINE HYDROCHLORIDE
  10. EPINEPHRINE [Concomitant]
     Active Substance: EPINEPHRINE
  11. ACETAMINOPHEN [Concomitant]
     Active Substance: ACETAMINOPHEN
  12. Lmx [Concomitant]
  13. FEXOFENADINE HYDROCHLORIDE [Concomitant]
     Active Substance: FEXOFENADINE HYDROCHLORIDE

REACTIONS (18)
  - Pneumonia [Unknown]
  - Neoplasm malignant [Unknown]
  - Neoplasm [Unknown]
  - Nasopharyngitis [Unknown]
  - Dermatitis contact [Unknown]
  - Radiation injury [Unknown]
  - Viral infection [Unknown]
  - Streptococcal infection [Unknown]
  - Rhinovirus infection [Unknown]
  - Insurance issue [Unknown]
  - Product use issue [Unknown]
  - Infusion site induration [Recovered/Resolved]
  - Somnolence [Unknown]
  - Dermatitis [Unknown]
  - Injection site pain [Unknown]
  - Pain [Unknown]
  - Infusion site reaction [Unknown]
  - Erythema [Unknown]
